FAERS Safety Report 8144746-0 (Version None)
Quarter: 2012Q1

REPORT INFORMATION
  Report Type: 
  Country: None (occurrence: None)
  Receive Date: 20120217
  Receipt Date: 20120207
  Transmission Date: 20120608
  Serious: Yes (Hospitalization)
  Sender: FDA-Public Use
  Company Number: US-BAYER-2011-000649

PATIENT
  Age: 27 Year
  Sex: Female
  Weight: 88.435 kg

DRUGS (2)
  1. YASMIN [Suspect]
     Indication: PRODUCT USED FOR UNKNOWN INDICATION
     Dosage: UNK
     Dates: start: 20060101, end: 20070101
  2. YAZ [Suspect]
     Dosage: UNK
     Dates: start: 20060101, end: 20070101

REACTIONS (1)
  - CHOLELITHIASIS [None]
